FAERS Safety Report 6302392-5 (Version None)
Quarter: 2009Q3

REPORT INFORMATION
  Report Type: 
  Country: None (occurrence: None)
  Receive Date: 20090810
  Receipt Date: 20090807
  Transmission Date: 20100115
  Serious: Yes (Life-Threatening)
  Sender: FDA-Public Use
  Company Number: ES-ASTRAZENECA-2009SE07100

PATIENT
  Age: 23357 Day
  Sex: Female
  Weight: 74 kg

DRUGS (2)
  1. FULVESTRANT [Suspect]
     Indication: BREAST CANCER
     Route: 030
     Dates: start: 20081016, end: 20090727
  2. ANASTROZOLE [Suspect]
     Indication: BREAST CANCER
     Route: 048
     Dates: start: 20081016

REACTIONS (1)
  - HYPERSENSITIVITY [None]
